FAERS Safety Report 18124468 (Version 5)
Quarter: 2021Q2

REPORT INFORMATION
  Report Type: Spontaneous
  Country: US (occurrence: US)
  Receive Date: 20200807
  Receipt Date: 20210416
  Transmission Date: 20210717
  Serious: No
  Sender: FDA-Public Use
  Company Number: US-PFIZER INC-2020298855

PATIENT
  Age: 73 Year
  Sex: Female
  Weight: 78.02 kg

DRUGS (7)
  1. B12 RAPID SHOT [Concomitant]
     Dosage: UNK
     Dates: start: 1974, end: 1980
  2. PREMARIN [Suspect]
     Active Substance: ESTROGENS, CONJUGATED
     Indication: MOOD SWINGS
  3. PREMARIN [Suspect]
     Active Substance: ESTROGENS, CONJUGATED
     Indication: OOPHORECTOMY
     Dosage: 1.25 MG, CYCLIC(1.25MG EVERY DAY THEN SKIP FIVE DAYS THEN RESUME EVERY DAY)
     Dates: start: 1974
  4. PREMARIN [Suspect]
     Active Substance: ESTROGENS, CONJUGATED
     Indication: HORMONE REPLACEMENT THERAPY
     Dosage: LAST BOTTLE MADE THEM LAST AS LONG AS I COULD BY SKIPPING DOSAGE
     Dates: start: 2016
  5. PREMARIN [Suspect]
     Active Substance: ESTROGENS, CONJUGATED
     Indication: ROUTINE HEALTH MAINTENANCE
  6. PREMARIN [Suspect]
     Active Substance: ESTROGENS, CONJUGATED
     Indication: FATIGUE
  7. PREMARIN [Suspect]
     Active Substance: ESTROGENS, CONJUGATED
     Indication: INSOMNIA

REACTIONS (10)
  - Memory impairment [Unknown]
  - Feeling abnormal [Unknown]
  - Hyperhidrosis [Unknown]
  - Breast haematoma [Unknown]
  - Dry skin [Not Recovered/Not Resolved]
  - Intentional dose omission [Unknown]
  - Pain [Unknown]
  - Fall [Unknown]
  - Weight increased [Not Recovered/Not Resolved]
  - Alopecia [Not Recovered/Not Resolved]

NARRATIVE: CASE EVENT DATE: 2016
